FAERS Safety Report 16526671 (Version 1)
Quarter: 2019Q3

REPORT INFORMATION
  Report Type: Report from Study
  Country: US (occurrence: US)
  Receive Date: 20190704
  Receipt Date: 20190704
  Transmission Date: 20191004
  Serious: Yes (Death)
  Sender: FDA-Public Use
  Company Number: US-BLUE EARTH DIAGNOSTICS LIMITED-BED-000037-2019

PATIENT
  Age: 73 Year
  Sex: Male
  Weight: 65.3 kg

DRUGS (1)
  1. FLUCICLOVINE (18F) [Suspect]
     Active Substance: FLUCICLOVINE F-18
     Indication: POSITRON EMISSION TOMOGRAM
     Dosage: UNK
     Route: 065

REACTIONS (1)
  - Death [Fatal]

NARRATIVE: CASE EVENT DATE: 20190319
